FAERS Safety Report 5507580-3 (Version None)
Quarter: 2007Q4

REPORT INFORMATION
  Report Type: 
  Country: None (occurrence: None)
  Receive Date: 20071105
  Receipt Date: 20071105
  Transmission Date: 20080405
  Serious: Yes (Hospitalization)
  Sender: FDA-Public Use
  Company Number: None

PATIENT
  Sex: Female
  Weight: 49.8 kg

DRUGS (3)
  1. DEXAMETHASONE [Suspect]
     Dosage: 16 MG
  2. DOXORUBICIN HYDROCHLORIDE [Suspect]
     Dosage: 38 MG
  3. VINCRISTINE SULFATE [Suspect]
     Dosage: 8 MG

REACTIONS (5)
  - ABDOMINAL PAIN UPPER [None]
  - BLOOD PRESSURE DECREASED [None]
  - DYSPHAGIA [None]
  - DYSPNOEA [None]
  - RALES [None]
